FAERS Safety Report 9894589 (Version 1)
Quarter: 2014Q1

REPORT INFORMATION
  Report Type: Spontaneous
  Country: JP (occurrence: JP)
  Receive Date: 20140213
  Receipt Date: 20140213
  Transmission Date: 20141002
  Serious: Yes (Other)
  Sender: FDA-Public Use
  Company Number: PHHY2014JP015433

PATIENT
  Age: 48 Year
  Sex: Male

DRUGS (4)
  1. 5-FLUOROURACIL [Suspect]
     Indication: COLON CANCER RECURRENT
  2. OXALIPLATIN [Suspect]
     Indication: COLON CANCER RECURRENT
  3. FOLINIC ACID [Suspect]
     Indication: COLON CANCER RECURRENT
  4. BEVACIZUMAB [Suspect]
     Indication: COLON CANCER RECURRENT

REACTIONS (1)
  - Mesenteric vein thrombosis [Recovering/Resolving]
